FAERS Safety Report 13677459 (Version 1)
Quarter: 2017Q2

REPORT INFORMATION
  Report Type: Spontaneous
  Country: US (occurrence: US)
  Receive Date: 20170622
  Receipt Date: 20170622
  Transmission Date: 20170830
  Serious: No
  Sender: FDA-Public Use
  Company Number: None

PATIENT
  Age: 75 Year
  Sex: Female
  Weight: 58.97 kg

DRUGS (12)
  1. ASPIRIN. [Concomitant]
     Active Substance: ASPIRIN
  2. STOOL SOFTENER (DOCUSATE) [Concomitant]
     Active Substance: DOCUSATE
  3. LEVOTHYROXIN [Concomitant]
     Active Substance: LEVOTHYROXINE
  4. CHLORTHALIDONE. [Concomitant]
     Active Substance: CHLORTHALIDONE
  5. VITAMIN D3 [Concomitant]
     Active Substance: CHOLECALCIFEROL
  6. VITAMIN D [Concomitant]
     Active Substance: CHOLECALCIFEROL
  7. DOCUSATE [Concomitant]
     Active Substance: DOCUSATE
  8. ACYCLOVIR. [Concomitant]
     Active Substance: ACYCLOVIR
  9. VALSARTAN. [Concomitant]
     Active Substance: VALSARTAN
  10. LABETALOL [Suspect]
     Active Substance: LABETALOL\LABETALOL HYDROCHLORIDE
     Indication: HYPERTENSION
     Route: 048
     Dates: start: 20170315
  11. LOPID [Concomitant]
     Active Substance: GEMFIBROZIL
  12. RALOXIFENE. [Concomitant]
     Active Substance: RALOXIFENE

REACTIONS (3)
  - Paraesthesia [None]
  - Photosensitivity reaction [None]
  - Headache [None]

NARRATIVE: CASE EVENT DATE: 201703
